FAERS Safety Report 6728713-7 (Version None)
Quarter: 2010Q2

REPORT INFORMATION
  Report Type: 
  Country: None (occurrence: None)
  Receive Date: 20100517
  Receipt Date: 20100511
  Transmission Date: 20101027
  Serious: Yes (Hospitalization)
  Sender: FDA-Public Use
  Company Number: US-GILEAD-2010-0029097

PATIENT
  Sex: Male

DRUGS (16)
  1. LETAIRIS [Suspect]
     Indication: PULMONARY ARTERIAL HYPERTENSION
     Route: 048
     Dates: start: 20090723
  2. OXYGEN [Concomitant]
  3. WARFARIN [Concomitant]
  4. FUROSEMIDE [Concomitant]
  5. SPIRONOLACTONE [Concomitant]
  6. COZAAR [Concomitant]
  7. METOPROLOL TARTRATE [Concomitant]
  8. PRAZOSIN HCL [Concomitant]
  9. BACTRIM DS [Concomitant]
  10. PROTONIX [Concomitant]
  11. MECLIZINE [Concomitant]
  12. ACETAMINOPHEN [Concomitant]
  13. HYDROCODONE BITARTRATE AND ACETAMINOPHEN [Concomitant]
  14. PREDNISONE TAB [Concomitant]
  15. POTASSIUM CHLORIDE [Concomitant]
  16. BL VITAMIN C [Concomitant]

REACTIONS (3)
  - ASTHENIA [None]
  - DYSPNOEA [None]
  - LUNG DISORDER [None]
